FAERS Safety Report 6656463-4 (Version None)
Quarter: 2010Q1

REPORT INFORMATION
  Report Type: 
  Country: None (occurrence: None)
  Receive Date: 20100329
  Receipt Date: 20100319
  Transmission Date: 20100710
  Serious: Yes (Other)
  Sender: FDA-Public Use
  Company Number: US-MPIJNJ-2010-01706

PATIENT
  Age: 63 Year
  Sex: Male
  Weight: 114.7 kg

DRUGS (7)
  1. VELCADE [Suspect]
     Indication: MANTLE CELL LYMPHOMA
     Dosage: 1.3 MG/M2, CYCLIC
     Route: 040
     Dates: start: 20071215, end: 20080225
  2. RITUXIMAB [Suspect]
     Indication: MANTLE CELL LYMPHOMA
     Dosage: 375 MG/M2, CYCLIC
     Route: 042
     Dates: start: 20071215, end: 20080222
  3. CYCLOPHOSPHAMIDE [Suspect]
     Indication: MANTLE CELL LYMPHOMA
     Dosage: 300 MG/M2, CYCLIC
     Route: 042
     Dates: start: 20071215, end: 20080225
  4. DOXORUBICIN HCL [Suspect]
     Indication: MANTLE CELL LYMPHOMA
     Dosage: 25 MG/M2, CYCLIC
     Route: 042
     Dates: start: 20071215, end: 20080224
  5. VINCRISTINE [Suspect]
     Indication: MANTLE CELL LYMPHOMA
     Dosage: 1 MG, CYCLIC
     Route: 040
     Dates: start: 20071215, end: 20080224
  6. DEXAMETHASONE [Suspect]
     Indication: MANTLE CELL LYMPHOMA
     Dosage: 40 MG, CYCLIC
     Dates: start: 20071215, end: 20080225
  7. NEULASTA [Suspect]
     Indication: MANTLE CELL LYMPHOMA
     Dosage: 6 MG, CYCLIC
     Route: 058
     Dates: start: 20071215, end: 20080226

REACTIONS (4)
  - ABDOMINAL DISTENSION [None]
  - BLOOD CREATININE [None]
  - DYSPNOEA [None]
  - MUSCULAR WEAKNESS [None]
